FAERS Safety Report 11718691 (Version 1)
Quarter: 2015Q4

REPORT INFORMATION
  Report Type: Spontaneous
  Country: US (occurrence: None)
  Receive Date: 20151109
  Receipt Date: 20151109
  Transmission Date: 20160304
  Serious: Yes (Other)
  Sender: FDA-Public Use
  Company Number: None

PATIENT
  Age: 68 Year
  Sex: Female
  Weight: 70.31 kg

DRUGS (8)
  1. FLUVOXAMINE [Concomitant]
     Active Substance: FLUVOXAMINE
  2. MELATONIN [Concomitant]
     Active Substance: MELATONIN
  3. GABAPENTIN. [Concomitant]
     Active Substance: GABAPENTIN
  4. ZETIA [Concomitant]
     Active Substance: EZETIMIBE
  5. SEROQUEL [Concomitant]
     Active Substance: QUETIAPINE FUMARATE
  6. TRAMADOL. [Concomitant]
     Active Substance: TRAMADOL
  7. BELSOMRA [Suspect]
     Active Substance: SUVOREXANT
     Indication: SLEEP DISORDER
     Dosage: 1-2 PILLS AT BEDTIME TAKEN BY MOUTH
     Route: 048
     Dates: start: 20150930, end: 20151006
  8. LUNESTA [Concomitant]
     Active Substance: ESZOPICLONE

REACTIONS (3)
  - Abnormal dreams [None]
  - Hallucination [None]
  - Drug ineffective [None]

NARRATIVE: CASE EVENT DATE: 20151001
